FAERS Safety Report 7251166-X (Version None)
Quarter: 2011Q1

REPORT INFORMATION
  Report Type: 
  Country: None (occurrence: None)
  Receive Date: 20110128
  Receipt Date: 20110119
  Transmission Date: 20110831
  Serious: Yes (Disabling)
  Sender: FDA-Public Use
  Company Number: GB-TEVA-264373ISR

PATIENT
  Age: 47 Year
  Sex: Female
  Weight: 133 kg

DRUGS (1)
  1. CLARITHROMYCIN [Suspect]
     Dates: start: 20110113

REACTIONS (1)
  - JOINT SWELLING [None]
